FAERS Safety Report 8595263-5 (Version None)
Quarter: 2012Q3

REPORT INFORMATION
  Report Type: 
  Country: None (occurrence: None)
  Receive Date: 20120815
  Receipt Date: 20120807
  Transmission Date: 20120928
  Serious: Yes (Other)
  Sender: FDA-Public Use
  Company Number: BE-PFIZER INC-2012193432

PATIENT
  Sex: Male
  Weight: 1.74 kg

DRUGS (2)
  1. ALPROSTADIL [Suspect]
     Dosage: 0.1 UG/KG PER MIN
     Route: 042
  2. ALPROSTADIL [Suspect]
     Dosage: OF 0.06 LG/KG PER MIN

REACTIONS (3)
  - PSEUDO-BARTTER SYNDROME [None]
  - POLYURIA [None]
  - URINE SODIUM INCREASED [None]
